FAERS Safety Report 20011648 (Version 2)
Quarter: 2022Q2

REPORT INFORMATION
  Report Type: Spontaneous
  Country: US (occurrence: US)
  Receive Date: 20211029
  Receipt Date: 20220407
  Transmission Date: 20220721
  Serious: No
  Sender: FDA-Public Use
  Company Number: US-BEH-2021137199

PATIENT
  Sex: Female

DRUGS (4)
  1. HIZENTRA [Suspect]
     Active Substance: HUMAN IMMUNOGLOBULIN G
     Indication: Selective IgG subclass deficiency
     Dosage: 10 GRAM, QOW
     Route: 058
     Dates: start: 202008
  2. HIZENTRA [Suspect]
     Active Substance: HUMAN IMMUNOGLOBULIN G
     Indication: Connective tissue disorder
     Dosage: 10 GRAM, QOW
     Route: 058
     Dates: start: 20200821
  3. HIZENTRA [Suspect]
     Active Substance: HUMAN IMMUNOGLOBULIN G
     Indication: Pulmonary fibrosis
  4. HIZENTRA [Suspect]
     Active Substance: HUMAN IMMUNOGLOBULIN G
     Indication: Hypogammaglobulinaemia

REACTIONS (4)
  - Swelling [Unknown]
  - No adverse event [Unknown]
  - Off label use [Unknown]
  - Swelling [Unknown]
